FAERS Safety Report 17810152 (Version 1)
Quarter: 2020Q2

REPORT INFORMATION
  Report Type: Spontaneous
  Country: US (occurrence: US)
  Receive Date: 20200521
  Receipt Date: 20200521
  Transmission Date: 20200714
  Serious: No
  Sender: FDA-Public Use
  Company Number: US-JNJFOC-20200432677

PATIENT
  Age: 59 Year
  Sex: Female
  Weight: 42.81 kg

DRUGS (1)
  1. PEPCID AC [Suspect]
     Active Substance: FAMOTIDINE
     Indication: DYSPEPSIA
     Dosage: 1 TABLET TWICE DAILY; DATE LAST ADMINISTERED: 23/APR/2020
     Route: 048
     Dates: start: 20200323

REACTIONS (2)
  - Pollakiuria [Not Recovered/Not Resolved]
  - Swollen tongue [Not Recovered/Not Resolved]

NARRATIVE: CASE EVENT DATE: 20200331
